FAERS Safety Report 20847000 (Version 2)
Quarter: 2022Q3

REPORT INFORMATION
  Report Type: Spontaneous
  Country: US (occurrence: US)
  Receive Date: 20220519
  Receipt Date: 20220726
  Transmission Date: 20221026
  Serious: Yes (Life-Threatening, Hospitalization, Other)
  Sender: FDA-Public Use
  Company Number: US-BRISTOL-MYERS SQUIBB COMPANY-2022-037458

PATIENT
  Age: 68 Year
  Sex: Male
  Weight: 85 kg

DRUGS (31)
  1. POMALYST [Suspect]
     Active Substance: POMALIDOMIDE
     Indication: Plasma cell myeloma refractory
     Dates: start: 20161212, end: 20170224
  2. POMALYST [Suspect]
     Active Substance: POMALIDOMIDE
     Dates: end: 201809
  3. POMALYST [Suspect]
     Active Substance: POMALIDOMIDE
     Dosage: 21 DAYS AND 7 DAYS OFF
     Route: 048
     Dates: start: 20220326
  4. POMALYST [Suspect]
     Active Substance: POMALIDOMIDE
     Route: 048
     Dates: start: 20220408
  5. ISATUXIMAB [Suspect]
     Active Substance: ISATUXIMAB
     Indication: Plasma cell myeloma
     Dosage: DAY 1 AND 8?15 AND 22 HELD
     Route: 042
     Dates: start: 20220408, end: 20220506
  6. ELIQUIS [Concomitant]
     Active Substance: APIXABAN
     Route: 048
  7. GLUCOPHAGE [Concomitant]
     Active Substance: METFORMIN HYDROCHLORIDE
     Dosage: 1000 MG TWICE DAILY
     Route: 048
  8. VELCADE [Concomitant]
     Active Substance: BORTEZOMIB
     Dates: start: 20161212, end: 20170224
  9. DEXAMETHASONE ACETATE [Concomitant]
     Active Substance: DEXAMETHASONE ACETATE
     Dates: start: 20161212, end: 20170224
  10. DEXAMETHASONE ACETATE [Concomitant]
     Active Substance: DEXAMETHASONE ACETATE
     Dates: start: 20220408
  11. DENOSUMAB [Concomitant]
     Active Substance: DENOSUMAB
     Dates: start: 20210804
  12. ACYCLOVIR [Concomitant]
     Active Substance: ACYCLOVIR
     Dosage: DISPENSE:60 TABLET?5 REFILL
     Route: 048
  13. ENTRESTO [Concomitant]
     Active Substance: SACUBITRIL\VALSARTAN
     Dosage: 24-26 MG?0.5 TABLETS
     Route: 048
  14. TRAMADOL HYDROCHLORIDE [Concomitant]
     Active Substance: TRAMADOL HYDROCHLORIDE
     Indication: Pain
     Dosage: AS NEEDED
  15. COREG [Concomitant]
     Active Substance: CARVEDILOL
     Route: 048
  16. CRESTOR [Concomitant]
     Active Substance: ROSUVASTATIN CALCIUM
  17. LANOXIN [Concomitant]
     Active Substance: DIGOXIN
     Route: 048
  18. PACERONE [Concomitant]
     Active Substance: AMIODARONE HYDROCHLORIDE
     Route: 048
  19. PROCHLORPERAZINE EDISYLATE [Concomitant]
     Active Substance: PROCHLORPERAZINE EDISYLATE
     Indication: Nausea
     Dosage: AS NEEDED
     Route: 048
  20. PROCHLORPERAZINE EDISYLATE [Concomitant]
     Active Substance: PROCHLORPERAZINE EDISYLATE
     Indication: Vomiting
  21. PLAVIX [Concomitant]
     Active Substance: CLOPIDOGREL BISULFATE
     Dosage: EVERY MORNING
     Route: 048
  22. GLUCOTROL [Concomitant]
     Active Substance: GLIPIZIDE
     Dosage: EVERY MORNING
     Route: 048
  23. LEVACECARNINE HYDROCHLORIDE [Concomitant]
     Active Substance: LEVACECARNINE HYDROCHLORIDE
     Route: 048
  24. ALBUTEROL SULFATE [Concomitant]
     Active Substance: ALBUTEROL SULFATE
     Indication: Dyspnoea
     Dosage: ACT INHALER?INHALE 2 PUFFS INTO THE LUNGS ?AS NEEDED
     Route: 055
  25. ROCALTROL [Concomitant]
     Active Substance: CALCITRIOL
     Route: 048
  26. MAGNESIUM OXIDE [Concomitant]
     Active Substance: MAGNESIUM OXIDE
     Route: 048
  27. VITAMIN B-1 [THIAMINE HYDROCHLORIDE] [Concomitant]
     Route: 048
  28. DAILY VITE [ASCORBIC ACID;COLECALCIFEROL;CYANOCOBALAMIN;FOLIC ACID;NIC [Concomitant]
     Route: 048
  29. CELEXA [Concomitant]
     Active Substance: CITALOPRAM HYDROBROMIDE
     Dosage: EVERY MORNING
     Route: 048
  30. FOLATE SODIUM [Concomitant]
     Active Substance: FOLATE SODIUM
     Route: 048
  31. PROTONIX [Concomitant]
     Active Substance: PANTOPRAZOLE SODIUM
     Dosage: EVERY MORNING
     Route: 048

REACTIONS (13)
  - Atrial fibrillation [Recovered/Resolved]
  - Syncope [Unknown]
  - Hypotension [Recovered/Resolved]
  - Bradycardia [Recovered/Resolved]
  - Diarrhoea [Unknown]
  - Coronary artery disease [Unknown]
  - Acute kidney injury [Unknown]
  - Pulmonary embolism [Recovered/Resolved]
  - Plasma cell myeloma refractory [Unknown]
  - Bacteraemia [Unknown]
  - Bone pain [Unknown]
  - Decreased appetite [Unknown]
  - Nausea [Unknown]

NARRATIVE: CASE EVENT DATE: 20210709
